FAERS Safety Report 7707728-6 (Version None)
Quarter: 2011Q3

REPORT INFORMATION
  Report Type: 
  Country: None (occurrence: None)
  Receive Date: 20110824
  Receipt Date: 20110810
  Transmission Date: 20111222
  Serious: Yes (Life-Threatening)
  Sender: FDA-Public Use
  Company Number: FR-GENENTECH-321249

PATIENT
  Sex: Female
  Weight: 64 kg

DRUGS (10)
  1. MABTHERA [Suspect]
     Dosage: 372 MG/M2, UNK
     Route: 042
     Dates: start: 20110711
  2. TIORFAN [Concomitant]
     Indication: PRODUCT USED FOR UNKNOWN INDICATION
     Dosage: UNK
  3. NORFLOXACIN [Suspect]
     Indication: DIARRHOEA
     Dosage: 400 MG, BID
     Route: 048
     Dates: start: 20110627, end: 20110704
  4. CYCLOPHOSPHAMIDE [Concomitant]
     Indication: LYMPHOMA
     Dosage: UNK
     Route: 042
     Dates: start: 20100901
  5. CETIRIZINE HCL [Suspect]
     Indication: PRODUCT USED FOR UNKNOWN INDICATION
     Dosage: 2 DF, UNK
     Route: 048
     Dates: start: 20110627, end: 20110704
  6. VINCRISTINE [Concomitant]
     Indication: LYMPHOMA
     Dosage: UNK
     Route: 042
     Dates: start: 20100901
  7. PREDNISOLONE [Concomitant]
     Indication: LYMPHOMA
     Dosage: UNK
     Dates: start: 20100901
  8. LORAZEPAM [Concomitant]
     Indication: PRODUCT USED FOR UNKNOWN INDICATION
     Dosage: UNK
  9. MABTHERA [Suspect]
     Indication: LYMPHOMA
     Dosage: 625 MG, UNK
     Route: 042
     Dates: start: 20100914
  10. MONUROL [Suspect]
     Indication: URINARY TRACT INFECTION
     Dosage: UNK
     Route: 048
     Dates: start: 20110623, end: 20110623

REACTIONS (4)
  - LEUKOPENIA [None]
  - MACROCYTOSIS [None]
  - AGRANULOCYTOSIS [None]
  - THROMBOCYTOPENIA [None]
